FAERS Safety Report 5762889 (Version 5)
Quarter: 2013Q2

REPORT INFORMATION
  Report Type: Report from Study
  Country: FR (occurrence: FR)
  Receive Date: 20050322
  Receipt Date: 20130627
  Transmission Date: 20140414
  Serious: Yes (Hospitalization)
  Sender: FDA-Public Use
  Company Number: FR-JNJFOC-20050302277

PATIENT
  Age: 58 Year
  Sex: Female
  Weight: 43 kg

DRUGS (2)
  1. INFLIXIMAB [Suspect]
     Indication: CROHN^S DISEASE
     Route: 042
     Dates: start: 20050216, end: 20050216
  2. ENTOCORT [Concomitant]
     Indication: CROHN^S DISEASE
     Dates: start: 20050201, end: 20050221

REACTIONS (6)
  - Enterocolonic fistula [Recovered/Resolved]
  - Intestinal obstruction [Recovered/Resolved]
  - Peritonitis [Recovered/Resolved]
  - Ileectomy [Recovered/Resolved]
  - Fistula repair [Recovered/Resolved]
  - Crohn^s disease [Recovered/Resolved]
